FAERS Safety Report 6642253-5 (Version None)
Quarter: 2010Q1

REPORT INFORMATION
  Report Type: 
  Country: None (occurrence: None)
  Receive Date: 20100319
  Receipt Date: 20100316
  Transmission Date: 20100710
  Serious: Yes (Death, Hospitalization)
  Sender: FDA-Public Use
  Company Number: US-SANOFI-AVENTIS-2010SA011179

PATIENT
  Age: 49 Year
  Sex: Female
  Weight: 60 kg

DRUGS (13)
  1. TAXOTERE [Suspect]
     Indication: BREAST CANCER
     Dosage: ONE 80 MG VIAL (EXPIRATION 31-AUG-2012); THREE 20 MG VIALS (EXPIRATION 30-JUN-2011)
     Route: 041
     Dates: start: 20100210, end: 20100210
  2. TAXOTERE [Suspect]
     Dosage: ONE 80 MG VIAL (EXPIRATION 31-AUG-2012); THREE 20 MG VIALS (EXPIRATION 30-JUN-2011)
     Route: 041
     Dates: start: 20100210, end: 20100210
  3. ADRIAMYCIN PFS [Suspect]
     Indication: BREAST CANCER
     Route: 042
     Dates: start: 20100210, end: 20100210
  4. CYCLOPHOSPHAMIDE [Suspect]
     Indication: BREAST CANCER
     Route: 042
     Dates: start: 20100210, end: 20100210
  5. DEXAMETHASONE [Concomitant]
  6. NEULASTA [Concomitant]
     Indication: NEUTROPENIA
     Route: 058
     Dates: start: 20100211, end: 20100211
  7. EMEND [Concomitant]
     Indication: NAUSEA
     Dosage: TRI PACK
     Dates: start: 20100209, end: 20100211
  8. ZOFRAN [Concomitant]
     Indication: NAUSEA
     Dates: start: 20100210, end: 20100210
  9. LORAZEPAM [Concomitant]
  10. COMPAZINE [Concomitant]
     Indication: NAUSEA
     Dates: start: 20100210, end: 20100210
  11. BUSPAR [Concomitant]
     Indication: DEPRESSION
  12. FLUOXETINE [Concomitant]
     Indication: DEPRESSION
  13. FLUOXETINE [Concomitant]
     Indication: ANXIETY

REACTIONS (8)
  - ABDOMINAL PAIN [None]
  - CAECITIS [None]
  - GASTROINTESTINAL NECROSIS [None]
  - INTESTINAL PERFORATION [None]
  - NAUSEA [None]
  - SEPSIS [None]
  - SEPTIC SHOCK [None]
  - VOMITING [None]
